FAERS Safety Report 23167261 (Version 3)
Quarter: 2025Q2

REPORT INFORMATION
  Report Type: Report from Study
  Country: CA (occurrence: CA)
  Receive Date: 20231109
  Receipt Date: 20250521
  Transmission Date: 20250716
  Serious: Yes (Hospitalization, Other)
  Sender: TAKEDA
  Company Number: CA-TAKEDA-2023TUS069810

PATIENT
  Sex: Male

DRUGS (14)
  1. VEDOLIZUMAB [Suspect]
     Active Substance: VEDOLIZUMAB
     Indication: Colitis ulcerative
  2. VEDOLIZUMAB [Suspect]
     Active Substance: VEDOLIZUMAB
  3. VEDOLIZUMAB [Suspect]
     Active Substance: VEDOLIZUMAB
  4. VEDOLIZUMAB [Suspect]
     Active Substance: VEDOLIZUMAB
  5. LIPITOR [Concomitant]
     Active Substance: ATORVASTATIN CALCIUM
  6. XARELTO [Concomitant]
     Active Substance: RIVAROXABAN
  7. BISOPROLOL [Concomitant]
     Active Substance: BISOPROLOL
  8. PERINDOPRIL [Concomitant]
     Active Substance: PERINDOPRIL
  9. METHOTREXATE [Concomitant]
     Active Substance: METHOTREXATE
  10. ALLOPURINOL [Concomitant]
     Active Substance: ALLOPURINOL
  11. VITAMIN D [Concomitant]
     Active Substance: VITAMIN D NOS
  12. MAGNESIUM [Concomitant]
     Active Substance: MAGNESIUM
  13. B12 [Concomitant]
  14. FOLIC ACID [Concomitant]
     Active Substance: FOLIC ACID

REACTIONS (5)
  - Intestinal obstruction [Recovered/Resolved]
  - Spinal fusion acquired [Recovering/Resolving]
  - Colitis ulcerative [Not Recovered/Not Resolved]
  - Frequent bowel movements [Recovered/Resolved]
  - Pouchitis [Not Recovered/Not Resolved]
